FAERS Safety Report 8408176-6 (Version None)
Quarter: 2012Q2

REPORT INFORMATION
  Report Type: 
  Country: None (occurrence: None)
  Receive Date: 20120604
  Receipt Date: 20120531
  Transmission Date: 20120825
  Serious: Yes (Other)
  Sender: FDA-Public Use
  Company Number: CHPA2012US010784

PATIENT
  Age: 76 Year
  Sex: Female

DRUGS (1)
  1. VOLTAREN [Suspect]
     Indication: NEURALGIA
     Dosage: 2 G, QID
     Route: 061
     Dates: start: 20120519, end: 20120521

REACTIONS (16)
  - HAEMATOCHEZIA [None]
  - DECREASED APPETITE [None]
  - OFF LABEL USE [None]
  - ERYTHEMA [None]
  - THERAPEUTIC RESPONSE UNEXPECTED [None]
  - JOINT SWELLING [None]
  - DIZZINESS [None]
  - HYPOAESTHESIA [None]
  - ABDOMINAL PAIN UPPER [None]
  - SWELLING [None]
  - EYE SWELLING [None]
  - SKIN DISCOLOURATION [None]
  - ASTHENIA [None]
  - MALAISE [None]
  - NAUSEA [None]
  - DRUG ADMINISTERED AT INAPPROPRIATE SITE [None]
